FAERS Safety Report 4811450-3 (Version None)
Quarter: 2005Q4

REPORT INFORMATION
  Report Type: 
  Country: None (occurrence: None)
  Receive Date: 20051025
  Receipt Date: 20051013
  Transmission Date: 20060501
  Serious: Yes (Other)
  Sender: FDA-Public Use
  Company Number: HQWYE041914OCT05

PATIENT
  Age: 69 Year
  Sex: Male

DRUGS (7)
  1. RAPAMUNE [Suspect]
     Indication: PROPHYLAXIS AGAINST TRANSPLANT REJECTION
     Dosage: 7 MG 1X PER 1 DAY
     Route: 048
     Dates: start: 20051003, end: 20051010
  2. SIMULECT [Concomitant]
  3. CELLCEPT [Concomitant]
  4. DOXAZOSIN (DOXAZOSIN) [Concomitant]
  5. SULFAMETHOXAZOLE + TRIMETHOPRIM [Concomitant]
  6. RANITIDINE [Concomitant]
  7. ORALDINE (HEXETIDINE) [Concomitant]

REACTIONS (10)
  - COMPLICATIONS OF TRANSPLANTED KIDNEY [None]
  - DIABETES MELLITUS [None]
  - DRUG RESISTANCE [None]
  - IMMUNOSUPPRESSANT DRUG LEVEL INCREASED [None]
  - INSOMNIA [None]
  - KIDNEY TRANSPLANT REJECTION [None]
  - NEPHROPATHY TOXIC [None]
  - PAIN [None]
  - RENAL TUBULAR NECROSIS [None]
  - URINARY TRACT INFECTION [None]
